FAERS Safety Report 16756947 (Version 3)
Quarter: 2019Q3

REPORT INFORMATION
  Report Type: Not Available
  Country: US (occurrence: US)
  Receive Date: 20190829
  Receipt Date: 20190930
  Transmission Date: 20191005
  Serious: Yes (Hospitalization)
  Sender: FDA-Public Use
  Company Number: US-NEUROCRINE BIOSCIENCES INC.-2019NBI02371

PATIENT
  Age: 78 Year
  Sex: Female

DRUGS (13)
  1. CYMBALTA [Concomitant]
     Active Substance: DULOXETINE HYDROCHLORIDE
     Dosage: 1.5 TABLET DAILY
  2. INGREZZA [Suspect]
     Active Substance: VALBENAZINE
     Route: 048
     Dates: start: 20170622
  3. DONEPEZIL. [Suspect]
     Active Substance: DONEPEZIL
     Indication: COGNITIVE DISORDER
     Dates: end: 20190823
  4. FUROSEMDE [Concomitant]
  5. MAGNESIUM [Concomitant]
     Active Substance: MAGNESIUM
  6. PRAVASTATIN. [Concomitant]
     Active Substance: PRAVASTATIN
     Indication: GASTROOESOPHAGEAL REFLUX DISEASE
  7. LISINOPRIL. [Concomitant]
     Active Substance: LISINOPRIL
     Indication: HYPERTENSION
     Dosage: HALF A TABLET DAILY
  8. METFORMIN [Concomitant]
     Active Substance: METFORMIN HYDROCHLORIDE
     Indication: DIABETES MELLITUS
  9. INGREZZA [Suspect]
     Active Substance: VALBENAZINE
     Indication: TARDIVE DYSKINESIA
     Route: 048
     Dates: start: 20170614, end: 20170621
  10. INGREZZA [Suspect]
     Active Substance: VALBENAZINE
     Route: 048
  11. PLAVIX [Concomitant]
     Active Substance: CLOPIDOGREL BISULFATE
  12. CALCIUM CALTRATE + VITAMIN D [Concomitant]
  13. ASPIRIN 81 [Concomitant]
     Active Substance: ASPIRIN
     Indication: CEREBROVASCULAR ACCIDENT

REACTIONS (2)
  - Small intestinal obstruction [Recovered/Resolved]
  - Nausea [Recovered/Resolved]

NARRATIVE: CASE EVENT DATE: 201907
